FAERS Safety Report 6451851-3 (Version None)
Quarter: 2009Q4

REPORT INFORMATION
  Report Type: 
  Country: None (occurrence: None)
  Receive Date: 20091123
  Receipt Date: 20091110
  Transmission Date: 20100525
  Serious: Yes (Hospitalization, Disabling)
  Sender: FDA-Public Use
  Company Number: DE-ELI_LILLY_AND_COMPANY-DE200911003429

PATIENT
  Age: 76 Year
  Sex: Female

DRUGS (8)
  1. ZYPREXA [Suspect]
     Indication: SCHIZOPHRENIA, PARANOID TYPE
     Dosage: 2.5 MG, DAILY (1/D)
     Route: 048
     Dates: start: 20081225, end: 20090104
  2. ZYPREXA [Suspect]
     Dosage: 5 MG, DAILY (1/D)
     Route: 048
     Dates: start: 20090105, end: 20090107
  3. ZYPREXA [Suspect]
     Dosage: 7.5 MG, DAILY (1/D)
     Route: 048
     Dates: start: 20090108, end: 20090110
  4. ZYPREXA [Suspect]
     Dosage: 10 MG, DAILY (1/D)
     Route: 048
     Dates: start: 20090111, end: 20090119
  5. DIAZEPAM [Concomitant]
     Dosage: 10-5MG
     Route: 048
     Dates: start: 20081210, end: 20090119
  6. THIAMAZOL [Concomitant]
     Dosage: 20-40MG
     Route: 048
     Dates: start: 20090108, end: 20090115
  7. NEXIUM [Concomitant]
     Dosage: 20 MG, UNK
     Route: 048
     Dates: start: 20090111, end: 20090119
  8. COTRIM [Concomitant]
     Dosage: 1920 MG, UNK
     Route: 048
     Dates: start: 20081211

REACTIONS (4)
  - ACUTE MYOCARDIAL INFARCTION [None]
  - BLOOD GLUCOSE INCREASED [None]
  - CARDIAC FAILURE [None]
  - WEIGHT INCREASED [None]
